FAERS Safety Report 5776176-0 (Version None)
Quarter: 2008Q2

REPORT INFORMATION
  Report Type: 
  Country: None (occurrence: None)
  Receive Date: 20080616
  Receipt Date: 20080602
  Transmission Date: 20081010
  Serious: Yes (Hospitalization)
  Sender: FDA-Public Use
  Company Number: MPS1-1000070

PATIENT
  Age: 11 Year
  Sex: Female

DRUGS (1)
  1. ALDURAZYME [Suspect]
     Indication: MUCOPOLYSACCHARIDOSIS I
     Dosage: 17.4 MG, QW, INTRAVENOUS
     Route: 042
     Dates: start: 20030619

REACTIONS (4)
  - EMOTIONAL DISORDER [None]
  - INJECTION SITE REACTION [None]
  - MUSCULOSKELETAL DISORDER [None]
  - PNEUMONIA [None]
